FAERS Safety Report 5713822-1 (Version None)
Quarter: 2008Q2

REPORT INFORMATION
  Report Type: 
  Country: None (occurrence: None)
  Receive Date: 20080421
  Receipt Date: 20080410
  Transmission Date: 20081010
  Serious: Yes (Disabling)
  Sender: FDA-Public Use
  Company Number: CERZ-1000162

PATIENT
  Age: 52 Year
  Sex: Female
  Weight: 71.2 kg

DRUGS (4)
  1. CEREZYME (IMIGLUCERASE) POWDER FOR SOLUTION FOR INFUSION [Suspect]
     Indication: GAUCHER'S DISEASE
     Dosage: 45 U/KG, Q2W, INTRAVENOUS; 1000 U, Q2W, INTRAVENOUS; 2000 U, Q2W, INTRAVENOUS
     Route: 042
     Dates: start: 19980625, end: 20001203
  2. CEREZYME (IMIGLUCERASE) POWDER FOR SOLUTION FOR INFUSION [Suspect]
     Indication: GAUCHER'S DISEASE
     Dosage: 45 U/KG, Q2W, INTRAVENOUS; 1000 U, Q2W, INTRAVENOUS; 2000 U, Q2W, INTRAVENOUS
     Route: 042
     Dates: start: 20001201
  3. CLARITIN [Concomitant]
  4. SOL-CORTEF (HYDROCORTISONE SODIUM SUCCINATE) [Concomitant]

REACTIONS (6)
  - BLOOD IMMUNOGLOBULIN G ABNORMAL [None]
  - CHEST DISCOMFORT [None]
  - FLUSHING [None]
  - HEADACHE [None]
  - INFUSION RELATED REACTION [None]
  - INTERVERTEBRAL DISC PROTRUSION [None]
